FAERS Safety Report 21233360 (Version 5)
Quarter: 2023Q2

REPORT INFORMATION
  Report Type: Spontaneous
  Country: US (occurrence: US)
  Receive Date: 20220819
  Receipt Date: 20230410
  Transmission Date: 20230722
  Serious: Yes (Other)
  Sender: FDA-Public Use
  Company Number: US-PFIZER INC-PV202200026367

PATIENT
  Age: 58 Year
  Sex: Male

DRUGS (2)
  1. BOSULIF [Suspect]
     Active Substance: BOSUTINIB MONOHYDRATE
     Indication: Chronic myeloid leukaemia
     Dosage: 400 MG
     Route: 048
  2. BOSULIF [Suspect]
     Active Substance: BOSUTINIB MONOHYDRATE
     Dosage: 500 MG, DAILY (TAKE 1 TABLET (100MG) WITH 1, 400 TABLET FOR A TOTAL OF 500MG DAILY)

REACTIONS (14)
  - Second primary malignancy [Unknown]
  - Lymphoma [Unknown]
  - Multiple sclerosis [Unknown]
  - Fall [Unknown]
  - Rotator cuff syndrome [Unknown]
  - Hereditary motor and sensory neuropathy [Unknown]
  - Essential tremor [Not Recovered/Not Resolved]
  - Myalgia [Not Recovered/Not Resolved]
  - Tremor [Not Recovered/Not Resolved]
  - Pain in extremity [Not Recovered/Not Resolved]
  - Back pain [Not Recovered/Not Resolved]
  - Fatigue [Not Recovered/Not Resolved]
  - Arthralgia [Unknown]
  - Product prescribing error [Unknown]
